FAERS Safety Report 19719798 (Version 1)
Quarter: 2021Q3

REPORT INFORMATION
  Report Type: Spontaneous
  Country: US (occurrence: US)
  Receive Date: 20210819
  Receipt Date: 20210819
  Transmission Date: 20211014
  Serious: No
  Sender: FDA-Public Use
  Company Number: None

PATIENT
  Age: 73 Year
  Sex: Male

DRUGS (1)
  1. HEPARIN (HEPARIN CA 25000UNT/ML INJ) [Suspect]
     Active Substance: HEPARIN CALCIUM
     Dates: start: 20210725, end: 20210725

REACTIONS (3)
  - Fibrin D dimer increased [None]
  - Heparin-induced thrombocytopenia [None]
  - Platelet count decreased [None]

NARRATIVE: CASE EVENT DATE: 20210810
